FAERS Safety Report 22171684 (Version 1)
Quarter: 2023Q2

REPORT INFORMATION
  Report Type: Report from Study
  Country: BR (occurrence: BR)
  Receive Date: 20230404
  Receipt Date: 20230404
  Transmission Date: 20230722
  Serious: Yes (Life-Threatening, Hospitalization)
  Sender: FDA-Public Use
  Company Number: BR-002147023-NVSC2023BR077090

PATIENT
  Sex: Female

DRUGS (1)
  1. DIOVAN HCT [Suspect]
     Active Substance: HYDROCHLOROTHIAZIDE\VALSARTAN
     Indication: Hypertension
     Dosage: UNK (320+12.5) (STARTED MORE THAN 12 YEARS AGO)
     Route: 065

REACTIONS (3)
  - COVID-19 [Recovered/Resolved with Sequelae]
  - Headache [Unknown]
  - Memory impairment [Unknown]
